FAERS Safety Report 16094821 (Version 1)
Quarter: 2019Q1

REPORT INFORMATION
  Report Type: Spontaneous
  Country: US (occurrence: US)
  Receive Date: 20190320
  Receipt Date: 20190320
  Transmission Date: 20190418
  Serious: Yes (Other)
  Sender: FDA-Public Use
  Company Number: US-AMGEN-USASP2019041279

PATIENT

DRUGS (1)
  1. PROLIA [Suspect]
     Active Substance: DENOSUMAB
     Indication: PRODUCT USED FOR UNKNOWN INDICATION
     Dosage: 60 MILLIGRAM
     Route: 065
     Dates: start: 201809

REACTIONS (5)
  - Pain in jaw [Unknown]
  - Patella fracture [Unknown]
  - Alopecia [Unknown]
  - Shock [Unknown]
  - Back pain [Unknown]

NARRATIVE: CASE EVENT DATE: 20190120
